FAERS Safety Report 8062307-9 (Version None)
Quarter: 2011Q4

REPORT INFORMATION
  Report Type: 
  Country: None (occurrence: None)
  Receive Date: 20111220
  Receipt Date: 20110824
  Transmission Date: 20120403
  Serious: Yes (Other)
  Sender: FDA-Public Use
  Company Number: 2011000754

PATIENT
  Sex: Male

DRUGS (1)
  1. FENTANYL CITRATE [Suspect]
     Dosage: 2400 MCG (800 MCG, 3 IN 1 D), BU
     Route: 002
     Dates: start: 20090101, end: 20110101

REACTIONS (3)
  - TOOTH DISCOLOURATION [None]
  - DENTAL CARIES [None]
  - TOOTH LOSS [None]
